FAERS Safety Report 16915119 (Version 1)
Quarter: 2019Q4

REPORT INFORMATION
  Report Type: Spontaneous
  Country: US (occurrence: US)
  Receive Date: 20191014
  Receipt Date: 20191014
  Transmission Date: 20200122
  Serious: Yes (Disabling, Other)
  Sender: FDA-Public Use
  Company Number: US-ASTRAZENECA-2019SF45733

PATIENT
  Age: 75 Year
  Sex: Female
  Weight: 63.5 kg

DRUGS (2)
  1. NEXIUM 24HR [Suspect]
     Active Substance: ESOMEPRAZOLE MAGNESIUM
     Indication: DYSPEPSIA
     Dosage: 20 MG, UNK (20MG 1 CAPSULE 2-3 TIMES A DAY)
     Route: 048
  2. ALKA-SELTZER [Concomitant]
     Active Substance: ANHYDROUS CITRIC ACID\ASPIRIN\SODIUM BICARBONATE
     Indication: DYSPEPSIA
     Dosage: UNK (CHEW 1 OR 2 AS NEEDED)

REACTIONS (10)
  - Rib fracture [Not Recovered/Not Resolved]
  - Balance disorder [Unknown]
  - Osteoporosis [Not Recovered/Not Resolved]
  - Hypoacusis [Unknown]
  - Product dose omission [Unknown]
  - Bone disorder [Not Recovered/Not Resolved]
  - Localised infection [Unknown]
  - Drug ineffective [Unknown]
  - Ligament sprain [Unknown]
  - Intentional product use issue [Unknown]

NARRATIVE: CASE EVENT DATE: 2019
